FAERS Safety Report 14321702 (Version 1)
Quarter: 2017Q4

REPORT INFORMATION
  Report Type: Spontaneous
  Country: US (occurrence: US)
  Receive Date: 20171224
  Receipt Date: 20171224
  Transmission Date: 20180321
  Serious: No
  Sender: FDA-Public Use
  Company Number: US-BIOGEN-2017BI00499725

PATIENT
  Sex: Female

DRUGS (2)
  1. TECFIDERA [Suspect]
     Active Substance: DIMETHYL FUMARATE
     Indication: MULTIPLE SCLEROSIS
     Route: 065
     Dates: start: 20170323
  2. TECFIDERA [Suspect]
     Active Substance: DIMETHYL FUMARATE
     Route: 065
     Dates: start: 20150223, end: 20151001

REACTIONS (3)
  - Hot flush [Unknown]
  - Memory impairment [Unknown]
  - Prescribed underdose [Unknown]
